FAERS Safety Report 7051329-2 (Version None)
Quarter: 2010Q4

REPORT INFORMATION
  Report Type: 
  Country: None (occurrence: None)
  Receive Date: 20101019
  Receipt Date: 20101013
  Transmission Date: 20110411
  Serious: Yes (Death, Hospitalization)
  Sender: FDA-Public Use
  Company Number: JP-SANOFI-AVENTIS-2010SA019093

PATIENT
  Age: 74 Year
  Sex: Female

DRUGS (3)
  1. ARAVA [Suspect]
     Route: 048
     Dates: start: 20090428, end: 20100326
  2. BREDININ [Suspect]
     Route: 048
  3. PREDNISOLONE [Concomitant]

REACTIONS (6)
  - BONE MARROW FAILURE [None]
  - HYPOURICAEMIA [None]
  - RENAL DISORDER [None]
  - SEPSIS [None]
  - STAPHYLOCOCCAL INFECTION [None]
  - TOXIC EPIDERMAL NECROLYSIS [None]
